FAERS Safety Report 17795497 (Version 2)
Quarter: 2020Q2

REPORT INFORMATION
  Report Type: Report from Study
  Country: None (occurrence: CO)
  Receive Date: 20200515
  Receipt Date: 20200604
  Transmission Date: 20200714
  Serious: Yes (Other)
  Sender: FDA-Public Use
  Company Number: CO-ABBVIE-20K-036-3403475-00

PATIENT
  Age: 48 Year
  Sex: Female
  Weight: 72 kg

DRUGS (5)
  1. MEDICINE (DOES NOT REFER) (NON-ABBVIE) [Concomitant]
     Indication: OSTEOPOROSIS
  2. ZEMPLAR [Suspect]
     Active Substance: PARICALCITOL
     Indication: ENDOSCOPIC RETROGRADE CHOLANGIOPANCREATOGRAPHY
  3. ZEMPLAR [Suspect]
     Active Substance: PARICALCITOL
     Indication: POST PROCEDURAL COMPLICATION
     Dosage: POST-DIALYSIS
     Route: 042
     Dates: start: 20190605
  4. ZEMPLAR [Suspect]
     Active Substance: PARICALCITOL
     Indication: HYPERPARATHYROIDISM SECONDARY
  5. MEDICINE (DOES NOT REFER) (NON-ABBVIE) [Concomitant]
     Indication: PLASMA CELL MYELOMA

REACTIONS (5)
  - Fatigue [Recovering/Resolving]
  - Swelling face [Recovering/Resolving]
  - Pulmonary oedema [Recovering/Resolving]
  - Inflammation [Recovering/Resolving]
  - Lung disorder [Recovering/Resolving]

NARRATIVE: CASE EVENT DATE: 20200508
